FAERS Safety Report 14665301 (Version 2)
Quarter: 2018Q1

REPORT INFORMATION
  Report Type: Spontaneous
  Country: DE (occurrence: DE)
  Receive Date: 20180321
  Receipt Date: 20180321
  Transmission Date: 20180509
  Serious: Yes (Death)
  Sender: FDA-Public Use
  Company Number: PHHY2018DE045878

PATIENT

DRUGS (6)
  1. PANOBINOSTAT [Suspect]
     Active Substance: PANOBINOSTAT
     Indication: PLASMA CELL MYELOMA
     Dosage: 20 MG, ON DAYS 1, 3, 5, 8, 10, AND 12 CYCLES 1 TO 8  3 WEEK CYCLES
     Route: 065
  2. DEXAMETHASONE. [Suspect]
     Active Substance: DEXAMETHASONE
     Indication: PLASMA CELL MYELOMA
     Dosage: 20 MG, ON DAYS 1, 2, 4, 5, 8, 9, 11 AND 12 CYCLES 1 TO 8 3 WEEK CYCLES
     Route: 065
  3. PANOBINOSTAT [Suspect]
     Active Substance: PANOBINOSTAT
     Dosage: 20 MG, ON DAYS 1, 3, 5, 8, 10, 12, 22, 24, 26, 29, 31 AND 33 CYCLES 9 TO 18  6 WEEK CYCLES
     Route: 065
  4. DEXAMETHASONE. [Suspect]
     Active Substance: DEXAMETHASONE
     Dosage: 20 MG, ON DAYS 1, 2, 8, 9, 22, 23, 29 AND 30 CYCLES 9 TO 18  6 WEEK CYCLES
     Route: 065
  5. BORTEZOMIB [Suspect]
     Active Substance: BORTEZOMIB
     Dosage: 1.3 MG/M2, UNK
     Route: 058
  6. BORTEZOMIB [Suspect]
     Active Substance: BORTEZOMIB
     Indication: PLASMA CELL MYELOMA
     Dosage: 1.3 MG/M2, ON DAYS 1, 4, 8 AND 11 CYCLES 1 TO 8 3 WEEK CYCLES
     Route: 058

REACTIONS (2)
  - Product use in unapproved indication [Unknown]
  - Hepatic failure [Fatal]
